FAERS Safety Report 8622896-X (Version None)
Quarter: 2012Q3

REPORT INFORMATION
  Report Type: 
  Country: None (occurrence: None)
  Receive Date: 20120827
  Receipt Date: 20120822
  Transmission Date: 20120928
  Serious: Yes (Hospitalization, Other)
  Sender: FDA-Public Use
  Company Number: PHEH2012US016561

PATIENT
  Sex: Female

DRUGS (1)
  1. GILENYA [Suspect]
     Indication: MULTIPLE SCLEROSIS
     Dosage: 0.5 MG, QD
     Route: 048
     Dates: start: 20120820

REACTIONS (3)
  - MULTIPLE SCLEROSIS RELAPSE [None]
  - BLOOD PRESSURE DIASTOLIC INCREASED [None]
  - HEART RATE INCREASED [None]
